FAERS Safety Report 9909288 (Version 2)
Quarter: 2014Q1

REPORT INFORMATION
  Report Type: Spontaneous
  Country: US (occurrence: US)
  Receive Date: 20140219
  Receipt Date: 20140219
  Transmission Date: 20141002
  Serious: No
  Sender: FDA-Public Use
  Company Number: US-GILEAD-2012-0049129

PATIENT
  Sex: Female

DRUGS (5)
  1. LETAIRIS [Suspect]
     Indication: PULMONARY HYPERTENSION
     Dosage: 5 MG, UNK
     Route: 048
     Dates: start: 20110429
  2. LETAIRIS [Suspect]
     Indication: SCLERODERMA
  3. ZITHROMAX Z-PAK [Suspect]
  4. PREDNISONE [Suspect]
  5. HYDROCODONE [Suspect]

REACTIONS (3)
  - Confusional state [Unknown]
  - Hypoaesthesia [Unknown]
  - Tremor [Unknown]
